FAERS Safety Report 5441619-9 (Version None)
Quarter: 2007Q3

REPORT INFORMATION
  Report Type: 
  Country: None (occurrence: None)
  Receive Date: 20070829
  Receipt Date: 20070816
  Transmission Date: 20080115
  Serious: Yes (Hospitalization)
  Sender: FDA-Public Use
  Company Number: 2006P1000316

PATIENT
  Age: 56 Year
  Sex: Female
  Weight: 82.6 kg

DRUGS (14)
  1. RETEPLASE (RETEPLASE) [Suspect]
     Indication: ACUTE MYOCARDIAL INFARCTION
     Dosage: 5 IIU; BID; IV
     Route: 042
     Dates: start: 20060325, end: 20060325
  2. ABCIXIMAB (ABCIXIMAB) [Suspect]
     Indication: MYOCARDIAL INFARCTION
     Dosage: 10 MG; X1; IV, 17 MG; X1; IV
     Route: 042
     Dates: start: 20060325, end: 20060325
  3. ABCIXIMAB (ABCIXIMAB) [Suspect]
     Indication: MYOCARDIAL INFARCTION
     Dosage: 10 MG; X1; IV, 17 MG; X1; IV
     Route: 042
     Dates: start: 20060325, end: 20060325
  4. PLACEBO (PLACEBO) [Suspect]
     Indication: ACUTE MYOCARDIAL INFARCTION
     Dosage: 0.25 MG/KG; X1; IV
     Route: 042
     Dates: start: 20060325, end: 20060325
  5. ROSUVASTATIN [Concomitant]
  6. ASPIRIN [Concomitant]
  7. CLOPIDOGREL [Concomitant]
  8. TRANDOLAPRIL [Concomitant]
  9. BISOPROLOL [Concomitant]
  10. RANITIDINE [Concomitant]
  11. METFORMIN HCL [Concomitant]
  12. THEOPHYLLINE [Concomitant]
  13. BUDESONIDE [Concomitant]
  14. FOLIC ACID [Concomitant]

REACTIONS (1)
  - CORONARY ARTERY STENOSIS [None]
